FAERS Safety Report 4936747-8 (Version None)
Quarter: 2006Q1

REPORT INFORMATION
  Report Type: 
  Country: None (occurrence: None)
  Receive Date: 20060302
  Receipt Date: 20060220
  Transmission Date: 20060701
  Serious: Yes (Other)
  Sender: FDA-Public Use
  Company Number: 2006016564

PATIENT
  Age: 72 Year
  Sex: Female
  Weight: 60 kg

DRUGS (2)
  1. XALATAN [Suspect]
     Indication: GLAUCOMA
     Dosage: 1 DROP (1 IN 1 D), OPHTHALMIC
     Route: 047
     Dates: start: 20020101, end: 20050401
  2. LUMIGAN [Concomitant]
     Indication: ILL-DEFINED DISORDER
     Dosage: OPHTHALMIC
     Route: 047
     Dates: start: 20050401

REACTIONS (5)
  - DRUG TOLERANCE [None]
  - HYPERTONIA [None]
  - INFLAMMATION [None]
  - POST PROCEDURAL COMPLICATION [None]
  - UVEITIS [None]
